FAERS Safety Report 8950241 (Version 3)
Quarter: 2013Q2

REPORT INFORMATION
  Report Type: Spontaneous
  Country: US (occurrence: US)
  Receive Date: 20121205
  Receipt Date: 20130422
  Transmission Date: 20140414
  Serious: No
  Sender: FDA-Public Use
  Company Number: US-ELI_LILLY_AND_COMPANY-US201201008848

PATIENT
  Sex: Female

DRUGS (8)
  1. FORTEO [Suspect]
     Indication: SENILE OSTEOPOROSIS
     Dosage: 20 UG, QD
     Dates: start: 2009
  2. FORTEO [Suspect]
     Dosage: 20 UG, QD
     Dates: start: 20120113
  3. FORTEO [Suspect]
     Dosage: 20 UG, QD
  4. FORTEO [Suspect]
     Dosage: 20 UG, QD
  5. FORTEO [Suspect]
     Dosage: 20 UG, QD
  6. EVISTA [Suspect]
     Indication: OSTEOPENIA
     Dosage: 60 MG, QD
     Dates: end: 201204
  7. ACTONEL [Concomitant]
  8. RECLAST [Concomitant]

REACTIONS (20)
  - Scoliosis [Unknown]
  - Osteoarthritis [Unknown]
  - Osteoporosis [Not Recovered/Not Resolved]
  - Osteoporosis [Not Recovered/Not Resolved]
  - Back disorder [Unknown]
  - Malaise [Unknown]
  - Irritability [Unknown]
  - Dizziness [Recovered/Resolved]
  - Dizziness [Recovered/Resolved]
  - Nausea [Unknown]
  - Intentional drug misuse [Unknown]
  - Dizziness [Recovered/Resolved]
  - Gait disturbance [Unknown]
  - Body height decreased [Unknown]
  - Drug ineffective [Unknown]
  - Fatigue [Unknown]
  - Gait disturbance [Unknown]
  - Nodule [Unknown]
  - Joint range of motion decreased [Unknown]
  - Erythema [Unknown]
